FAERS Safety Report 16402334 (Version 2)
Quarter: 2019Q2

REPORT INFORMATION
  Report Type: Report from Study
  Country: MX (occurrence: MX)
  Receive Date: 20190607
  Receipt Date: 20190624
  Transmission Date: 20190711
  Serious: Yes (Other)
  Sender: FDA-Public Use
  Company Number: PHHY2019MX130024

PATIENT
  Sex: Male
  Weight: 73 kg

DRUGS (7)
  1. TRAVATAN [Concomitant]
     Active Substance: TRAVOPROST
     Indication: GLAUCOMA
     Dosage: 1 GTT (IN THE LEFT EYE), Q12H
     Route: 065
     Dates: start: 20190614
  2. AZARGA [Suspect]
     Active Substance: BRINZOLAMIDE\TIMOLOL MALEATE
     Indication: GLAUCOMA
     Dosage: 1 GTT (IN BOTH EYES), QD
     Route: 047
  3. ROSUVASTATIN. [Suspect]
     Active Substance: ROSUVASTATIN
     Indication: DYSURIA
     Dosage: 1 DF, QD (STARTED 1 YEAR AGO)
     Route: 048
  4. DILATREND [Concomitant]
     Active Substance: CARVEDILOL
     Indication: CARDIAC DISORDER
     Dosage: 1 DF, QD (STARTED 10 YEARS AGO)
     Route: 048
  5. LOSARTAN. [Concomitant]
     Active Substance: LOSARTAN
     Indication: CARDIAC DISORDER
     Dosage: 1 DF, QD (STARTED 2 YEARS AGO)
     Route: 048
  6. ASPIRIN. [Concomitant]
     Active Substance: ASPIRIN
     Indication: PRODUCT USED FOR UNKNOWN INDICATION
     Dosage: 1 DF, QD (STARTED 10 YEARS AGO)
     Route: 048
  7. CRESTOR [Concomitant]
     Active Substance: ROSUVASTATIN CALCIUM
     Indication: CARDIAC DISORDER
     Dosage: 1 DF, QD (STARTED 10 YEARS AGO AND STOPPED 2 YEARS AGO)
     Route: 048

REACTIONS (6)
  - Concomitant disease aggravated [Unknown]
  - Cataract [Unknown]
  - Dry throat [Unknown]
  - Diarrhoea [Recovered/Resolved]
  - Dysuria [Recovered/Resolved]
  - Visual impairment [Unknown]
